FAERS Safety Report 6428709-9 (Version None)
Quarter: 2009Q4

REPORT INFORMATION
  Report Type: 
  Country: None (occurrence: None)
  Receive Date: 20091104
  Receipt Date: 20091104
  Transmission Date: 20100525
  Serious: Yes (Hospitalization)
  Sender: FDA-Public Use
  Company Number: None

PATIENT
  Age: 60 Year
  Sex: Male

DRUGS (2)
  1. SORAFENIB [Suspect]
     Indication: HEPATIC NEOPLASM MALIGNANT
     Dosage: 400 MG BID PO
     Route: 048
     Dates: start: 20090620, end: 20090703
  2. PROCHLOROPERAZINE [Suspect]
     Indication: NAUSEA
     Dosage: 10 MG QID PO
     Route: 048
     Dates: start: 20090620, end: 20090703

REACTIONS (2)
  - CHOLESTASIS [None]
  - HEPATIC ENCEPHALOPATHY [None]
